FAERS Safety Report 6125044-3 (Version None)
Quarter: 2009Q1

REPORT INFORMATION
  Report Type: 
  Country: None (occurrence: None)
  Receive Date: 20090319
  Receipt Date: 20090227
  Transmission Date: 20090719
  Serious: Yes (Other)
  Sender: FDA-Public Use
  Company Number: JP-GENENTECH-259870

PATIENT
  Sex: Male
  Weight: 53.2 kg

DRUGS (4)
  1. BEVACIZUMAB [Suspect]
     Indication: NON-SMALL CELL LUNG CANCER
     Dosage: 15 MG/KG, Q3W
     Route: 042
     Dates: start: 20070606, end: 20080109
  2. PACLITAXEL [Concomitant]
     Indication: NON-SMALL CELL LUNG CANCER
     Dosage: 210 MG/M2, Q3W
     Route: 042
     Dates: start: 20070606, end: 20070718
  3. CARBOPLATIN [Concomitant]
     Indication: NON-SMALL CELL LUNG CANCER
     Dosage: 6 UNIT, Q3W
     Route: 042
     Dates: start: 20070606, end: 20070718
  4. PL GRANULES [Concomitant]
     Indication: DRUG USE FOR UNKNOWN INDICATION
     Dosage: UNK
     Dates: start: 20080104, end: 20080108

REACTIONS (2)
  - EOSINOPHILIA [None]
  - RASH [None]
